FAERS Safety Report 4336972-3 (Version None)
Quarter: 2004Q1

REPORT INFORMATION
  Report Type: 
  Country: None (occurrence: None)
  Receive Date: 20040329
  Receipt Date: 20040205
  Transmission Date: 20041129
  Serious: No
  Sender: FDA-Public Use
  Company Number: USA0404258604

PATIENT
  Age: 6 Year
  Sex: Female
  Weight: 19 kg

DRUGS (2)
  1. STRATTERA [Suspect]
     Indication: ATTENTION DEFICIT/HYPERACTIVITY DISORDER
     Dates: start: 20031109
  2. ACETAMINOPHEN [Concomitant]

REACTIONS (21)
  - CHEST PAIN [None]
  - DECREASED APPETITE [None]
  - DIZZINESS [None]
  - DYSPEPSIA [None]
  - ENURESIS [None]
  - FEELING ABNORMAL [None]
  - FLUSHING [None]
  - FOOD CRAVING [None]
  - HERPES SIMPLEX [None]
  - MOOD SWINGS [None]
  - NASAL DISCOMFORT [None]
  - NAUSEA [None]
  - NIGHT SWEATS [None]
  - PRESCRIBED OVERDOSE [None]
  - PYREXIA [None]
  - RASH [None]
  - SOMNOLENCE [None]
  - TRICHOTILLOMANIA [None]
  - VISUAL DISTURBANCE [None]
  - VOMITING [None]
  - WEIGHT DECREASED [None]
